FAERS Safety Report 5465780-5 (Version None)
Quarter: 2007Q3

REPORT INFORMATION
  Report Type: 
  Country: None (occurrence: None)
  Receive Date: 20070924
  Receipt Date: 20070912
  Transmission Date: 20080115
  Serious: Yes (Other)
  Sender: FDA-Public Use
  Company Number: B0487556A

PATIENT
  Age: 45 Year
  Sex: Female
  Weight: 83 kg

DRUGS (2)
  1. SERETIDE DISKUS [Suspect]
     Indication: ASTHMA
     Dosage: 4PUFF PER DAY
     Route: 055
     Dates: start: 20050101
  2. SINGULAIR [Suspect]
     Indication: ASTHMA
     Dates: start: 20050101

REACTIONS (3)
  - ASTHMA [None]
  - DIZZINESS [None]
  - HEADACHE [None]
